FAERS Safety Report 10204782 (Version 4)
Quarter: 2014Q3

REPORT INFORMATION
  Report Type: Spontaneous
  Country: DK (occurrence: DK)
  Receive Date: 20140529
  Receipt Date: 20140730
  Transmission Date: 20150326
  Serious: Yes (Death, Hospitalization, Other)
  Sender: FDA-Public Use
  Company Number: DK-ELI_LILLY_AND_COMPANY-DK201405007298

PATIENT
  Age: 47 Year
  Sex: Male
  Weight: 80 kg

DRUGS (12)
  1. ZYPADHERA [Suspect]
     Active Substance: OLANZAPINE PAMOATE
     Indication: PSYCHOTIC DISORDER
     Dosage: 210 MG, 2/M
     Route: 065
     Dates: start: 20121217
  2. METHADONE [Suspect]
     Active Substance: METHADONE HYDROCHLORIDE
     Indication: PRODUCT USED FOR UNKNOWN INDICATION
     Dosage: 1 DF, UNKNOWN
     Route: 065
  3. OXABENZ [Concomitant]
     Active Substance: OXAZEPAM
     Indication: ALCOHOL ABUSE
     Dosage: 300 MG, UNKNOWN
     Route: 065
  4. OXABENZ [Concomitant]
     Active Substance: OXAZEPAM
     Indication: PSYCHOTIC DISORDER
     Dosage: 7.5 MG, QID
     Route: 065
     Dates: start: 20130731
  5. VENLAFAXIN [Concomitant]
     Active Substance: VENLAFAXINE HYDROCHLORIDE
     Indication: ALCOHOL ABUSE
     Dosage: 1 DF, QD
     Route: 065
  6. THIAMINE [Concomitant]
     Active Substance: THIAMINE
     Indication: PSYCHOTIC DISORDER
     Dosage: 150 MG, QD
     Route: 065
     Dates: start: 20131011
  7. ZYPADHERA [Suspect]
     Active Substance: OLANZAPINE PAMOATE
     Indication: ALCOHOL ABUSE
  8. PROMETHAZINE [Concomitant]
     Active Substance: PROMETHAZINE\PROMETHAZINE HYDROCHLORIDE
     Indication: HYPERSENSITIVITY
     Dosage: 1 DF, UNKNOWN
     Route: 065
  9. THIAMINE [Concomitant]
     Active Substance: THIAMINE
     Indication: ALCOHOL ABUSE
     Dosage: 300 MG, UNKNOWN
     Route: 065
  10. VITAMIN B12 [Concomitant]
     Active Substance: CYANOCOBALAMIN
     Dosage: 1 MG, UNKNOWN
     Route: 065
  11. B-COMBIN                           /00003501/ [Concomitant]
     Indication: PRODUCT USED FOR UNKNOWN INDICATION
     Dosage: UNK, UNKNOWN
     Route: 065
  12. VENLAFAXIN [Concomitant]
     Active Substance: VENLAFAXINE HYDROCHLORIDE
     Indication: PSYCHOTIC DISORDER
     Dosage: 150 MG, QD
     Route: 065
     Dates: start: 20131011

REACTIONS (10)
  - Alcohol abuse [Unknown]
  - Lymph node calcification [Unknown]
  - Arteriosclerosis coronary artery [Unknown]
  - Toxicity to various agents [Fatal]
  - Blood triglycerides [Unknown]
  - Hepatic steatosis [Unknown]
  - Blood cholesterol increased [Recovering/Resolving]
  - Brain oedema [Unknown]
  - Drug dose omission [Recovered/Resolved]
  - Sinusitis [Unknown]

NARRATIVE: CASE EVENT DATE: 20130913
